FAERS Safety Report 8219925-4 (Version None)
Quarter: 2012Q1

REPORT INFORMATION
  Report Type: 
  Country: None (occurrence: None)
  Receive Date: 20120319
  Receipt Date: 20120308
  Transmission Date: 20120608
  Serious: Yes (Hospitalization)
  Sender: FDA-Public Use
  Company Number: BR-ASTRAZENECA-2012SE16535

PATIENT
  Age: 62 Year
  Sex: Female
  Weight: 115 kg

DRUGS (2)
  1. UNKNOWN [Concomitant]
     Indication: HYPERTENSION
     Route: 048
     Dates: end: 20080101
  2. NEXIUM [Suspect]
     Indication: GASTROOESOPHAGEAL REFLUX DISEASE
     Route: 048
     Dates: start: 20080101

REACTIONS (8)
  - WEIGHT INCREASED [None]
  - VOMITING [None]
  - PNEUMONIA [None]
  - PLEURAL EFFUSION [None]
  - HYPOTENSION [None]
  - BLOOD URIC ACID INCREASED [None]
  - WEIGHT DECREASED [None]
  - BLOOD CHOLESTEROL INCREASED [None]
